FAERS Safety Report 9347384 (Version 2)
Quarter: 2013Q3

REPORT INFORMATION
  Report Type: Report from Study
  Country: KR (occurrence: KR)
  Receive Date: 20130613
  Receipt Date: 20130730
  Transmission Date: 20140515
  Serious: Yes (Hospitalization, Other)
  Sender: FDA-Public Use
  Company Number: KR-009507513-1306KOR005852

PATIENT
  Age: 72 Year
  Sex: Female
  Weight: 63.25 kg

DRUGS (10)
  1. DEXAMETHASONE [Suspect]
     Indication: PLASMA CELL MYELOMA
     Dosage: 20 MG, ON DAYS 1,2,4,5,8,9,11 AND12 EVERY 21 DAYS
     Route: 048
     Dates: start: 20130409, end: 20130529
  2. BORTEZOMIB [Suspect]
     Indication: PLASMA CELL MYELOMA
     Dosage: 1.3 MG/M2, ON DAYS 1,4,8,11 EVERY 21 DAYS
     Route: 058
     Dates: start: 20130409, end: 20130528
  3. STUDY DRUG (UNSPECIFIED) [Suspect]
     Indication: PLASMA CELL MYELOMA
     Dosage: UNK
     Dates: start: 20130409, end: 20130521
  4. STUDY DRUG (UNSPECIFIED) [Suspect]
     Dosage: UNK
     Dates: start: 20130625
  5. RANITIDINE [Concomitant]
     Indication: PAIN PROPHYLAXIS
     Dosage: UNK
     Dates: start: 20121211
  6. CALCIUM CARBONATE (+) CHOLECALCIFEROL [Concomitant]
     Indication: PROPHYLAXIS
     Dosage: UNK
     Dates: start: 20120314
  7. HYDROCHLOROTHIAZIDE (+) IRBESARTAN [Concomitant]
     Indication: HYPERTENSION
     Dosage: UNK
     Dates: start: 200803, end: 20130627
  8. PRAVASTATIN SODIUM [Concomitant]
     Indication: BLOOD CHOLESTEROL INCREASED
     Dosage: UNK
     Dates: start: 20130521
  9. GABAPENTIN [Concomitant]
     Indication: BACK PAIN
     Dosage: UNK
     Dates: start: 20130402, end: 20130531
  10. ACETAMINOPHEN (+) TRAMADOL HYDROCHLORIDE [Concomitant]
     Indication: BACK PAIN
     Dosage: UNK
     Dates: start: 20130306, end: 20130531

REACTIONS (2)
  - Facial pain [Not Recovered/Not Resolved]
  - Herpes zoster [Recovered/Resolved with Sequelae]
